FAERS Safety Report 19962907 (Version 1)
Quarter: 2021Q4

REPORT INFORMATION
  Report Type: Spontaneous
  Country: US (occurrence: US)
  Receive Date: 20211017
  Receipt Date: 20211017
  Transmission Date: 20220303
  Serious: Yes (Other)
  Sender: FDA-Public Use
  Company Number: None

PATIENT
  Age: 48 Year
  Sex: Female
  Weight: 69.75 kg

DRUGS (1)
  1. .DELTA.8-TETRAHYDROCANNABINOL\HERBALS [Suspect]
     Active Substance: .DELTA.8-TETRAHYDROCANNABINOL\HERBALS
     Indication: Anxiety
     Dosage: ?          QUANTITY:1 GUMMY;
     Route: 048

REACTIONS (12)
  - Product complaint [None]
  - Formication [None]
  - Feeding disorder [None]
  - Sensory disturbance [None]
  - Time perception altered [None]
  - Paradoxical drug reaction [None]
  - Suspected product contamination [None]
  - Feeling abnormal [None]
  - Loss of consciousness [None]
  - Product use complaint [None]
  - Illusion [None]
  - Fear of death [None]

NARRATIVE: CASE EVENT DATE: 20211015
